FAERS Safety Report 9526028 (Version 1)
Quarter: 2013Q3

REPORT INFORMATION
  Report Type: Spontaneous
  Country: US (occurrence: None)
  Receive Date: 20130913
  Receipt Date: 20130913
  Transmission Date: 20140515
  Serious: Yes (Hospitalization)
  Sender: FDA-Public Use
  Company Number: None

PATIENT
  Age: 57 Year
  Sex: Male
  Weight: 75 kg

DRUGS (3)
  1. CISPLATIN [Suspect]
  2. BACTRIM [Concomitant]
  3. LISINOPRIL [Concomitant]

REACTIONS (3)
  - Nausea [None]
  - Renal failure acute [None]
  - Blood creatinine increased [None]
